FAERS Safety Report 5267848-5 (Version None)
Quarter: 2007Q1

REPORT INFORMATION
  Report Type: 
  Country: None (occurrence: None)
  Receive Date: 20061213
  Receipt Date: 20050825
  Transmission Date: 20070707
  Serious: Yes (Other)
  Sender: FDA-Public Use
  Company Number: 2005UW12632

PATIENT
  Age: 67 Year
  Sex: Female
  Weight: 81 kg

DRUGS (1)
  1. IRESSA [Suspect]
     Dates: start: 20030101

REACTIONS (3)
  - EAR INFECTION [None]
  - INFECTION [None]
  - RHINITIS [None]
